FAERS Safety Report 13421864 (Version 2)
Quarter: 2017Q2

REPORT INFORMATION
  Report Type: Spontaneous
  Country: US (occurrence: US)
  Receive Date: 20170410
  Receipt Date: 20170530
  Transmission Date: 20170830
  Serious: No
  Sender: FDA-Public Use
  Company Number: US-PFIZER INC-2017149830

PATIENT
  Age: 54 Year
  Sex: Female

DRUGS (4)
  1. LETROZOLE. [Concomitant]
     Active Substance: LETROZOLE
     Dosage: 2.5 MG, UNK
     Dates: start: 201603
  2. IBRANCE [Suspect]
     Active Substance: PALBOCICLIB
     Dosage: UNK
  3. PALBOCICLIB [Concomitant]
     Active Substance: PALBOCICLIB
     Dosage: UNK
     Dates: start: 201603
  4. KEPPRA [Concomitant]
     Active Substance: LEVETIRACETAM
     Indication: MENINGIOMA
     Dosage: 750 MG, 2X/DAY
     Dates: start: 201603

REACTIONS (1)
  - Malaise [Recovered/Resolved]
